FAERS Safety Report 25999001 (Version 1)
Quarter: 2025Q4

REPORT INFORMATION
  Report Type: Spontaneous
  Country: EU (occurrence: EU)
  Receive Date: 20251105
  Receipt Date: 20251105
  Transmission Date: 20260117
  Serious: Yes (Hospitalization, Other)
  Sender: AUROBINDO
  Company Number: EU-LRB-01092597

PATIENT
  Age: 53 Year
  Sex: Male
  Weight: 112 kg

DRUGS (1)
  1. ATORVASTATIN [Suspect]
     Active Substance: ATORVASTATIN
     Indication: Hypercholesterolaemia
     Dosage: 40 MILLIGRAM, ONCE A DAY (1 X PER DAG 1 STUK)
     Route: 048
     Dates: start: 20230101, end: 20250929

REACTIONS (2)
  - Rhabdomyolysis [Recovering/Resolving]
  - Necrotising myositis [Recovering/Resolving]
